FAERS Safety Report 14104511 (Version 4)
Quarter: 2018Q3

REPORT INFORMATION
  Report Type: Spontaneous
  Country: FR (occurrence: FR)
  Receive Date: 20171018
  Receipt Date: 20180725
  Transmission Date: 20181010
  Serious: Yes (Hospitalization, Other)
  Sender: FDA-Public Use
  Company Number: FR-SA-2017SA200857

PATIENT
  Age: 42 Year
  Sex: Male

DRUGS (11)
  1. GLUCOSE [Concomitant]
     Active Substance: DEXTROSE
     Dosage: 100 ML,UNK
     Route: 040
  2. FLUOROURACIL. [Suspect]
     Active Substance: FLUOROURACIL
     Indication: OESOPHAGEAL ADENOCARCINOMA
     Dosage: 920 MG,QCY, 3 CYCLICAL
     Route: 040
  3. FOLINIC ACID [Concomitant]
     Active Substance: LEUCOVORIN
     Indication: GASTROINTESTINAL CANCER METASTATIC
  4. OXALIPLATIN. [Suspect]
     Active Substance: OXALIPLATIN
     Indication: METASTASES TO LIVER
     Dosage: UNK UNK,QCY
     Route: 042
  5. GLUCOSE [Concomitant]
     Active Substance: DEXTROSE
     Dosage: 500 ML,UNK
     Route: 042
  6. FLUOROURACIL. [Suspect]
     Active Substance: FLUOROURACIL
     Indication: CHEMOTHERAPY
     Dosage: 5500 MG,QCY, 3 CYCLICAL
     Route: 042
  7. SODIUM CHLORIDE. [Concomitant]
     Active Substance: SODIUM CHLORIDE
     Dosage: 140 ML,UNK
     Route: 042
  8. FOLINIC ACID [Concomitant]
     Active Substance: LEUCOVORIN
     Indication: OESOPHAGEAL ADENOCARCINOMA
  9. FOLINIC ACID [Concomitant]
     Active Substance: LEUCOVORIN
     Indication: METASTASES TO LIVER
     Dosage: UNK UNK,QCY
     Route: 042
  10. OXALIPLATIN. [Suspect]
     Active Substance: OXALIPLATIN
     Indication: OESOPHAGEAL ADENOCARCINOMA
     Dosage: 190 MG,QCY, 2 CYCLICAL
     Route: 042
  11. OXALIPLATIN. [Suspect]
     Active Substance: OXALIPLATIN
     Indication: CHEMOTHERAPY

REACTIONS (9)
  - Chest discomfort [Unknown]
  - Dysphonia [Recovered/Resolved]
  - Toxicity to various agents [Unknown]
  - Bronchospasm [Recovered/Resolved]
  - Cardiotoxicity [Recovered/Resolved]
  - Vocal cord paralysis [Unknown]
  - Administration site extravasation [Recovered/Resolved]
  - Pain [Recovered/Resolved]
  - Cough [Recovered/Resolved]
